FAERS Safety Report 11297679 (Version 1)
Quarter: 2015Q3

REPORT INFORMATION
  Report Type: Spontaneous
  Country: US (occurrence: US)
  Receive Date: 20150722
  Receipt Date: 20150722
  Transmission Date: 20151125
  Serious: No
  Sender: FDA-Public Use
  Company Number: US-ELI_LILLY_AND_COMPANY-US200905004892

PATIENT
  Age: 53 Year
  Sex: Female

DRUGS (3)
  1. HUMATROPE [Suspect]
     Active Substance: SOMATROPIN
     Dosage: UNK, UNK
     Dates: end: 200902
  2. HUMATROPE [Suspect]
     Active Substance: SOMATROPIN
     Dates: start: 200905
  3. SYNTHROID [Concomitant]
     Active Substance: LEVOTHYROXINE SODIUM
     Dosage: 200 UG, DAILY (1/D)

REACTIONS (2)
  - Asthenia [Recovered/Resolved]
  - Influenza [Recovered/Resolved]

NARRATIVE: CASE EVENT DATE: 200902
